FAERS Safety Report 13959562 (Version 2)
Quarter: 2017Q4

REPORT INFORMATION
  Report Type: Other
  Country: GB (occurrence: GB)
  Receive Date: 20170912
  Receipt Date: 20171010
  Transmission Date: 20180320
  Serious: Yes (Other)
  Sender: FDA-Public Use
  Company Number: GB-GLENMARK PHARMACEUTICALS-2017GMK028771

PATIENT

DRUGS (8)
  1. SEEBRI BREEZHALER [Concomitant]
     Active Substance: GLYCOPYRROLATE
     Indication: PRODUCT USED FOR UNKNOWN INDICATION
     Dosage: 44 ?G, OD
  2. SYMBICORT [Concomitant]
     Active Substance: BUDESONIDE\FORMOTEROL FUMARATE DIHYDRATE
     Indication: PRODUCT USED FOR UNKNOWN INDICATION
     Dosage: 1 DF, BID
  3. INDAPAMIDE. [Concomitant]
     Active Substance: INDAPAMIDE
     Indication: HYPERTENSION
     Dosage: 2.5 MG, OD
     Route: 048
  4. OXYNORM [Concomitant]
     Active Substance: OXYCODONE HYDROCHLORIDE
     Indication: PLEURITIC PAIN
     Dosage: UNK, PRN
     Route: 048
     Dates: start: 20170722, end: 20170805
  5. MONTELUKAST SODIUM. [Suspect]
     Active Substance: MONTELUKAST SODIUM
     Indication: DYSPNOEA
     Dosage: 10 MG, OD
     Route: 048
     Dates: start: 20170721, end: 20170729
  6. AMLODIPINE [Concomitant]
     Active Substance: AMLODIPINE BESYLATE
     Indication: HYPERTENSION
     Dosage: 5 MG, OD
     Route: 048
  7. UNIPHYLLIN CONTINUS [Concomitant]
     Active Substance: THEOPHYLLINE ANHYDROUS
     Indication: DYSPNOEA
     Dosage: 200 MG, BID
     Route: 048
     Dates: start: 20170721
  8. LIDOCAINE. [Concomitant]
     Active Substance: LIDOCAINE
     Indication: PLEURITIC PAIN
     Dosage: 1 DF, OD
     Route: 062
     Dates: start: 20170722

REACTIONS (7)
  - Tongue discolouration [Recovered/Resolved]
  - Diarrhoea [Recovered/Resolved]
  - Swollen tongue [Recovered/Resolved]
  - Paraesthesia [Recovered/Resolved]
  - Tongue dry [Unknown]
  - Gait disturbance [Recovered/Resolved]
  - Oral pain [Recovered/Resolved]

NARRATIVE: CASE EVENT DATE: 20170722
